FAERS Safety Report 11003216 (Version 1)
Quarter: 2015Q2

REPORT INFORMATION
  Report Type: Spontaneous
  Country: AU (occurrence: None)
  Receive Date: 20150402
  Receipt Date: 20150402
  Transmission Date: 20150821
  Serious: Yes (Death, Hospitalization, Other)
  Sender: FDA-Public Use
  Company Number: GAM-064-15-AU

PATIENT
  Age: 86 Year
  Sex: Female

DRUGS (16)
  1. PARACETAMOL [Concomitant]
     Active Substance: ACETAMINOPHEN
  2. MIRTAZEPINE [Concomitant]
  3. AZITHROMYCIN [Concomitant]
     Active Substance: AZITHROMYCIN ANHYDROUS
  4. SODIUM CLODRONATE [Concomitant]
     Active Substance: CLODRONIC ACID
  5. HERBAL SUPPLEMENT [Concomitant]
     Active Substance: HERBALS
  6. THYROXINE [Concomitant]
     Active Substance: LEVOTHYROXINE
  7. CEFTRIAXONE. [Concomitant]
     Active Substance: CEFTRIAXONE
  8. OCTAGAM IMMUNE GLOBULIN (HUMAN) [Suspect]
     Active Substance: HUMAN IMMUNOGLOBULIN G
     Indication: NON-HODGKIN^S LYMPHOMA
     Dosage: 25 G (1 X 1/TOTAL)
     Route: 042
     Dates: start: 20150226, end: 20150226
  9. PREDNISOLONE. [Concomitant]
     Active Substance: PREDNISOLONE
  10. OXAZEPAM. [Concomitant]
     Active Substance: OXAZEPAM
  11. ENOXAPARIN [Concomitant]
     Active Substance: ENOXAPARIN
  12. VITAMIN D [Concomitant]
     Active Substance: CHOLECALCIFEROL
  13. MAGNESIUM [Concomitant]
     Active Substance: MAGNESIUM
  14. OLANZAPINE. [Concomitant]
     Active Substance: OLANZAPINE
  15. MACROGOL [Concomitant]
     Active Substance: POLYETHYLENE GLYCOLS
  16. PANTOPRAZOLE [Concomitant]
     Active Substance: PANTOPRAZOLE SODIUM

REACTIONS (3)
  - Infusion related reaction [None]
  - Hypersensitivity [None]
  - Lung neoplasm malignant [None]
